FAERS Safety Report 24554623 (Version 1)
Quarter: 2024Q4

REPORT INFORMATION
  Report Type: Spontaneous
  Country: US (occurrence: US)
  Receive Date: 20241028
  Receipt Date: 20241028
  Transmission Date: 20250114
  Serious: No
  Sender: Haleon PLC
  Company Number: US-HALEON-2204905

PATIENT
  Age: 60 Year
  Sex: Female

DRUGS (1)
  1. SENSODYNE PRONAMEL ACTIVE SHIELD FRESH MINT [Suspect]
     Active Substance: POTASSIUM NITRATE\SODIUM FLUORIDE
     Indication: Product used for unknown indication
     Dosage: EXPIRATION DATE WAS REPORTED AS 2025-04-00

REACTIONS (1)
  - Hypogeusia [Not Recovered/Not Resolved]
